FAERS Safety Report 4412394-1 (Version None)
Quarter: 2004Q3

REPORT INFORMATION
  Report Type: 
  Country: None (occurrence: None)
  Receive Date: 20040727
  Receipt Date: 20040714
  Transmission Date: 20050211
  Serious: Yes (Hospitalization)
  Sender: FDA-Public Use
  Company Number: 04P-163-0267008-00

PATIENT
  Age: 7 Year
  Sex: Male

DRUGS (8)
  1. KALETRA [Suspect]
     Indication: HIV INFECTION
     Dosage: 2.5 ML, 2 IN1 D, PER ORAL
     Route: 048
  2. LAMIVUDINE [Concomitant]
  3. EFAVIRENZ [Concomitant]
  4. ZIDOVUDINE [Concomitant]
  5. CLONIDINE HCL [Concomitant]
  6. LANSOPRAZOLE [Concomitant]
  7. CETIRIZINE HCL [Concomitant]
  8. MONTELUKAST SODIUM [Concomitant]

REACTIONS (3)
  - HEPATITIS [None]
  - HYPERGLYCAEMIA [None]
  - MEDICATION ERROR [None]
